FAERS Safety Report 11194694 (Version 3)
Quarter: 2015Q3

REPORT INFORMATION
  Report Type: Spontaneous
  Country: JP (occurrence: JP)
  Receive Date: 20150617
  Receipt Date: 20150731
  Transmission Date: 20151125
  Serious: Yes (Death)
  Sender: FDA-Public Use
  Company Number: JP-ROCHE-1595478

PATIENT
  Age: 45 Year
  Sex: Female

DRUGS (5)
  1. ACTEMRA [Suspect]
     Active Substance: TOCILIZUMAB
     Indication: RHEUMATOID ARTHRITIS
     Dosage: DOSAGE IS UNCERTAIN.
     Route: 041
     Dates: start: 200905, end: 20150525
  2. EDIROL [Concomitant]
     Active Substance: ELDECALCITOL
     Dosage: AMOUNT OF 1 ONCE ADMINISTRATION: 1 (UNIT UNCERTAINTY)
     Route: 048
  3. SELBEX [Concomitant]
     Active Substance: TEPRENONE
     Indication: PROPHYLAXIS
     Dosage: AMOUNT OF 1 ONCE ADMINISTRATION: 1 (UNIT UNCERTAINTY)
     Route: 048
  4. THYRADIN-S [Concomitant]
     Active Substance: LEVOTHYROXINE
     Indication: HYPOTHYROIDISM
     Route: 048
  5. LOXONIN [Concomitant]
     Active Substance: LOXOPROFEN SODIUM
     Indication: RHEUMATOID ARTHRITIS
     Dosage: AMOUNT OF 1 ONCE ADMINISTRATION: 1 (UNIT UNCERTAINTY)
     Route: 048

REACTIONS (3)
  - Cerebral infarction [Fatal]
  - Myocarditis [Fatal]
  - Cerebral haemorrhage [Fatal]

NARRATIVE: CASE EVENT DATE: 20150607
